FAERS Safety Report 8543655 (Version 3)
Quarter: 2013Q2

REPORT INFORMATION
  Report Type: Spontaneous
  Country: US (occurrence: US)
  Receive Date: 20120503
  Receipt Date: 20130614
  Transmission Date: 20140414
  Serious: Yes (Hospitalization)
  Sender: FDA-Public Use
  Company Number: US-BAYER-2012-041441

PATIENT
  Age: 27 Year
  Sex: Female
  Weight: 119.27 kg

DRUGS (13)
  1. YASMIN [Suspect]
     Indication: CONTRACEPTION
     Dosage: UNK
     Dates: start: 200402, end: 200509
  2. YASMIN [Suspect]
     Indication: PREMENSTRUAL DYSPHORIC DISORDER
  3. YASMIN [Suspect]
     Indication: PREMENSTRUAL SYNDROME
  4. OCELLA [Suspect]
     Indication: PREMENSTRUAL SYNDROME
  5. LOTENSIN [Concomitant]
     Dosage: UNK
     Dates: start: 2005, end: 2006
  6. ATENOLOL [Concomitant]
     Dosage: UNK
     Dates: start: 2004, end: 2005
  7. PROZAC [Concomitant]
     Indication: DEPRESSION
     Dosage: 20 MG, QD
     Route: 048
     Dates: start: 20041203, end: 20050103
  8. PROZAC [Concomitant]
     Indication: DEPRESSION
     Dosage: 40 MG, QD
     Route: 048
     Dates: start: 20050104, end: 200505
  9. PRILOSEC [Concomitant]
     Indication: DYSPEPSIA
     Dosage: UNK UNK, BID
  10. TYLENOL [Concomitant]
  11. FLONASE [Concomitant]
  12. DOXYCYCLINE [Concomitant]
  13. GUAIFENESIN PSE [Concomitant]
     Indication: SINUSITIS

REACTIONS (11)
  - Gallbladder injury [None]
  - Cholecystitis chronic [None]
  - Injury [None]
  - Pain [None]
  - General physical health deterioration [None]
  - Emotional distress [None]
  - Headache [None]
  - Chest pain [None]
  - Dyspnoea [None]
  - Depression [None]
  - Off label use [None]
